FAERS Safety Report 17184382 (Version 1)
Quarter: 2019Q4

REPORT INFORMATION
  Report Type: Spontaneous
  Country: US (occurrence: US)
  Receive Date: 20191220
  Receipt Date: 20191220
  Transmission Date: 20200122
  Serious: No
  Sender: FDA-Public Use
  Company Number: US-TEVA-2019-US-1154768

PATIENT
  Sex: Female

DRUGS (1)
  1. APRI [Suspect]
     Active Substance: DESOGESTREL\ETHINYL ESTRADIOL
     Indication: PROPHYLACTIC CHEMOTHERAPY
     Route: 065
     Dates: start: 2014, end: 201909

REACTIONS (1)
  - Oestradiol increased [Unknown]

NARRATIVE: CASE EVENT DATE: 201910
